FAERS Safety Report 9265210 (Version 1)
Quarter: 2013Q2

REPORT INFORMATION
  Report Type: Spontaneous
  Country: US (occurrence: US)
  Receive Date: 20130501
  Receipt Date: 20130501
  Transmission Date: 20140414
  Serious: Yes (Hospitalization)
  Sender: FDA-Public Use
  Company Number: US-009507513-2009SP023489

PATIENT
  Sex: Female
  Weight: 64.86 kg

DRUGS (1)
  1. NUVARING [Suspect]
     Indication: CONTRACEPTION
     Dates: start: 200903, end: 20090314

REACTIONS (3)
  - Thrombophlebitis septic [Unknown]
  - Ovarian vein thrombosis [Unknown]
  - Dyspnoea [Unknown]
